FAERS Safety Report 15384406 (Version 2)
Quarter: 2018Q3

REPORT INFORMATION
  Report Type: Spontaneous
  Country: US (occurrence: US)
  Receive Date: 20180914
  Receipt Date: 20180925
  Transmission Date: 20181010
  Serious: No
  Sender: FDA-Public Use
  Company Number: US-UNITED THERAPEUTICS-UNT-2018-014559

PATIENT
  Age: 52 Year
  Sex: Female
  Weight: 107.3 kg

DRUGS (1)
  1. REMODULIN [Suspect]
     Active Substance: TREPROSTINIL
     Indication: PULMONARY ARTERIAL HYPERTENSION
     Dosage: 0.012 ?G/KG, CONTINUING
     Route: 058
     Dates: start: 20180516

REACTIONS (3)
  - Infusion site warmth [Recovered/Resolved]
  - Infusion site pain [Recovered/Resolved]
  - Infusion site paraesthesia [Recovered/Resolved]

NARRATIVE: CASE EVENT DATE: 201809
